FAERS Safety Report 5569093-2 (Version None)
Quarter: 2007Q4

REPORT INFORMATION
  Report Type: 
  Country: None (occurrence: None)
  Receive Date: 20071220
  Receipt Date: 20070706
  Transmission Date: 20080405
  Serious: No
  Sender: FDA-Public Use
  Company Number: A0662185A

PATIENT
  Age: 65 Year
  Sex: Male

DRUGS (11)
  1. AVODART [Suspect]
     Indication: BENIGN PROSTATIC HYPERPLASIA
     Dosage: .5MG PER DAY
     Route: 048
     Dates: start: 20021201, end: 20070101
  2. VACCINE [Concomitant]
  3. HEPATITIS B VACCINE [Concomitant]
  4. IMITREX [Concomitant]
  5. FROVA [Concomitant]
  6. PROTON PUMP INHIBITOR [Concomitant]
  7. IBUPROFEN [Concomitant]
  8. LEVOTHYROXINE SODIUM [Concomitant]
  9. ANABOLIC STEROID [Concomitant]
  10. TESTOSTERONE [Concomitant]
  11. NANDROLONE DECANOATE [Concomitant]

REACTIONS (1)
  - PROSTATIC SPECIFIC ANTIGEN INCREASED [None]
